FAERS Safety Report 8797085 (Version 2)
Quarter: 2012Q4

REPORT INFORMATION
  Report Type: 
  Country: AT (occurrence: AT)
  Receive Date: 20120919
  Receipt Date: 20121115
  Transmission Date: 20130627
  Serious: Yes (Other)
  Sender: FDA-Public Use
  Company Number: AT-GLAXOSMITHKLINE-B0828424A

PATIENT
  Sex: Male
  Weight: 89 kg

DRUGS (1)
  1. WELLBUTRIN [Suspect]
     Indication: DEPRESSION
     Dosage: 150MG Per day
     Route: 065
     Dates: start: 201205, end: 201208

REACTIONS (1)
  - Dysgeusia [Unknown]
